FAERS Safety Report 8841659 (Version 1)
Quarter: 2012Q4

REPORT INFORMATION
  Report Type: 
  Country: AU (occurrence: AU)
  Receive Date: 20121015
  Receipt Date: 20121015
  Transmission Date: 20130627
  Serious: Yes (Death)
  Sender: FDA-Public Use
  Company Number: AU-B.I. PHARMACEUTICALS,INC./RIDGEFIELD-2012-AU-01752AU

PATIENT
  Age: 10 None
  Sex: Male

DRUGS (1)
  1. PRADAXA [Suspect]
     Dates: start: 201106

REACTIONS (1)
  - Elderly [Fatal]
